FAERS Safety Report 4713084-8 (Version None)
Quarter: 2005Q3

REPORT INFORMATION
  Report Type: 
  Country: None (occurrence: None)
  Receive Date: 20050711
  Receipt Date: 20050630
  Transmission Date: 20060218
  Serious: Yes (Other)
  Sender: FDA-Public Use
  Company Number: HQWYE208017JUL04

PATIENT
  Age: 64 Year
  Sex: Female
  Weight: 90.8 kg

DRUGS (2)
  1. PREMARIN [Suspect]
     Indication: HORMONE REPLACEMENT THERAPY
     Dosage: 0.625 MG DAILY TO 1.25 MG DAILY, ORAL
     Route: 048
     Dates: start: 19800101, end: 20000101
  2. PROVERA [Suspect]
     Indication: HORMONE REPLACEMENT THERAPY
     Dosage: 2.5 MG, ORAL
     Route: 048
     Dates: end: 19990201

REACTIONS (7)
  - ARTHRALGIA [None]
  - BREAST CANCER FEMALE [None]
  - DYSSTASIA [None]
  - ENDOMETRIAL HYPERTROPHY [None]
  - METASTASES TO LYMPH NODES [None]
  - MYALGIA [None]
  - UTERINE POLYP [None]
